FAERS Safety Report 10940007 (Version 2)
Quarter: 2015Q2

REPORT INFORMATION
  Report Type: Spontaneous
  Country: US (occurrence: US)
  Receive Date: 20150322
  Receipt Date: 20150525
  Transmission Date: 20150821
  Serious: No
  Sender: FDA-Public Use
  Company Number: US-JNJFOC-20140402592

PATIENT

DRUGS (1)
  1. TAPENTADOL IR [Suspect]
     Active Substance: TAPENTADOL
     Indication: BACK PAIN
     Route: 048

REACTIONS (3)
  - Nausea [Unknown]
  - Constipation [Unknown]
  - Vomiting [Unknown]
